FAERS Safety Report 18841848 (Version 2)
Quarter: 2021Q3

REPORT INFORMATION
  Report Type: Spontaneous
  Country: US (occurrence: US)
  Receive Date: 20210204
  Receipt Date: 20210721
  Transmission Date: 20211014
  Serious: Yes (Hospitalization, Other)
  Sender: FDA-Public Use
  Company Number: US-SA-2021SA032193

PATIENT
  Age: 67 Year
  Sex: Female

DRUGS (4)
  1. KEVZARA [Suspect]
     Active Substance: SARILUMAB
     Indication: OSTEOARTHRITIS
  2. KEVZARA [Suspect]
     Active Substance: SARILUMAB
     Indication: RHEUMATOID ARTHRITIS
  3. NITROFURANTOIN. [Suspect]
     Active Substance: NITROFURANTOIN
  4. KEVZARA [Suspect]
     Active Substance: SARILUMAB
     Indication: COUGH
     Dosage: 200 MG, QOW
     Route: 058
     Dates: start: 20200730

REACTIONS (5)
  - Product use in unapproved indication [Unknown]
  - Thrombocytopenia [Unknown]
  - Sepsis [Unknown]
  - Urinary tract infection [Unknown]
  - Leukocytosis [Unknown]
